FAERS Safety Report 6146626-9 (Version None)
Quarter: 2009Q2

REPORT INFORMATION
  Report Type: 
  Country: None (occurrence: None)
  Receive Date: 20090403
  Receipt Date: 20090327
  Transmission Date: 20091009
  Serious: Yes (Hospitalization, Other)
  Sender: FDA-Public Use
  Company Number: 2008SP015242

PATIENT
  Age: 65 Year
  Sex: Female
  Weight: 59 kg

DRUGS (10)
  1. TEMODAR [Suspect]
     Indication: GLIOBLASTOMA MULTIFORME
     Dosage: 120 MG;QD;PO
     Route: 048
     Dates: start: 20080619, end: 20080729
  2. CALCIUM [Concomitant]
  3. BONIVA [Concomitant]
  4. HYDROCODONE BITARTRATE [Concomitant]
  5. ACETAMINOPHEN [Concomitant]
  6. DEXAMETHASONE 4MG TAB [Concomitant]
  7. ZOFRAN [Concomitant]
  8. PROTONIX [Concomitant]
  9. TYLENOL (CAPLET) [Concomitant]
  10. EXTRA STRENGTH TYLENOL [Concomitant]

REACTIONS (4)
  - FEBRILE NEUTROPENIA [None]
  - PETECHIAE [None]
  - PLATELET COUNT DECREASED [None]
  - WHITE BLOOD CELL COUNT DECREASED [None]
